FAERS Safety Report 7114512-3 (Version None)
Quarter: 2010Q4

REPORT INFORMATION
  Report Type: 
  Country: None (occurrence: None)
  Receive Date: 20101119
  Receipt Date: 20101112
  Transmission Date: 20110411
  Serious: Yes (Other)
  Sender: FDA-Public Use
  Company Number: IN-ABBOTT-10P-078-0685092-00

PATIENT
  Age: 33 Year
  Sex: Male

DRUGS (14)
  1. VALPARIN CHRONO [Suspect]
     Indication: EPILEPSY
     Route: 048
     Dates: start: 20100512, end: 20100514
  2. VALPARIN CHRONO [Suspect]
     Route: 048
     Dates: start: 20100515, end: 20100524
  3. VALPARIN CHRONO [Suspect]
     Route: 048
     Dates: start: 20100525, end: 20100526
  4. VALPARIN CHRONO [Suspect]
     Route: 048
     Dates: start: 20100527
  5. VALPARIN CHRONO [Suspect]
     Route: 048
     Dates: start: 20100629
  6. VALPARIN CHRONO [Suspect]
     Route: 048
     Dates: start: 20100712
  7. VALPARIN CHRONO [Suspect]
     Route: 048
     Dates: start: 20100723
  8. VALPARIN CHRONO [Suspect]
     Route: 048
     Dates: start: 20100824
  9. PHENYTOIN [Concomitant]
     Indication: PRODUCT USED FOR UNKNOWN INDICATION
  10. FRISIUM [Concomitant]
     Indication: PRODUCT USED FOR UNKNOWN INDICATION
  11. OMEPRAZOLE [Concomitant]
     Indication: PRODUCT USED FOR UNKNOWN INDICATION
  12. CETIRIZINE HCL [Concomitant]
     Indication: PRODUCT USED FOR UNKNOWN INDICATION
     Dates: start: 20100629
  13. ANTACIDS [Concomitant]
     Indication: PRODUCT USED FOR UNKNOWN INDICATION
     Dates: start: 20100629
  14. EPTOIN [Concomitant]
     Indication: PRODUCT USED FOR UNKNOWN INDICATION

REACTIONS (3)
  - CONVULSION [None]
  - DRUG INEFFECTIVE [None]
  - MEDICATION RESIDUE [None]
